FAERS Safety Report 13567819 (Version 1)
Quarter: 2017Q2

REPORT INFORMATION
  Report Type: Spontaneous
  Country: IT (occurrence: IT)
  Receive Date: 20170522
  Receipt Date: 20170522
  Transmission Date: 20170830
  Serious: Yes (Other)
  Sender: FDA-Public Use
  Company Number: IT-ASTRAZENECA-2017SE52368

PATIENT
  Age: 29596 Day
  Sex: Female

DRUGS (6)
  1. GLIMEPIRIDE. [Concomitant]
     Active Substance: GLIMEPIRIDE
  2. SIMVASTATIN. [Concomitant]
     Active Substance: SIMVASTATIN
  3. AMLODIPINE [Concomitant]
     Active Substance: AMLODIPINE BESYLATE
  4. FASLODEX [Suspect]
     Active Substance: FULVESTRANT
     Dosage: 250 MG X 2
     Route: 030
     Dates: start: 20170516, end: 20170516
  5. GALVUS [Concomitant]
     Active Substance: VILDAGLIPTIN
  6. CARDIOASPIRIN [Concomitant]
     Active Substance: ASPIRIN

REACTIONS (4)
  - Throat tightness [Recovered/Resolved]
  - Cough [Recovered/Resolved]
  - Hot flush [Recovered/Resolved]
  - Throat irritation [Recovered/Resolved]

NARRATIVE: CASE EVENT DATE: 20170516
